FAERS Safety Report 5002328-3 (Version None)
Quarter: 2006Q2

REPORT INFORMATION
  Report Type: 
  Country: None (occurrence: None)
  Receive Date: 20060510
  Receipt Date: 20060427
  Transmission Date: 20061013
  Serious: Yes (Death, Other)
  Sender: FDA-Public Use
  Company Number: 2005US001831

PATIENT
  Age: 68 Year
  Sex: Male
  Weight: 90.5 kg

DRUGS (8)
  1. PROTOPIC [Suspect]
     Indication: ECZEMA
     Dosage: BID, TOPICAL
     Route: 061
     Dates: start: 20050608, end: 20051122
  2. SYNTHROID [Concomitant]
  3. LOTREL [Concomitant]
  4. PEPCID [Concomitant]
  5. LORTAB [Concomitant]
  6. LASIX (FUROSEMIDE, FUROSEMIDE SODIUM) [Concomitant]
  7. BUMEX [Concomitant]
  8. POTASSIUM (POTASSIUM) [Concomitant]

REACTIONS (23)
  - ABDOMINAL PAIN UPPER [None]
  - ANOREXIA [None]
  - ASCITES [None]
  - ASTHENIA [None]
  - BILE DUCT CANCER [None]
  - BLOOD IRON DECREASED [None]
  - DISEASE PROGRESSION [None]
  - DIZZINESS [None]
  - EARLY SATIETY [None]
  - FAILURE TO THRIVE [None]
  - FALL [None]
  - FLUID RETENTION [None]
  - GENERAL PHYSICAL HEALTH DETERIORATION [None]
  - HEPATIC CANCER METASTATIC [None]
  - HEPATIC NEOPLASM MALIGNANT [None]
  - HYPOTENSION [None]
  - LYMPHADENOPATHY [None]
  - MALNUTRITION [None]
  - OEDEMA [None]
  - PAIN [None]
  - PYREXIA [None]
  - SEPSIS [None]
  - WEIGHT DECREASED [None]
